FAERS Safety Report 25503880 (Version 2)
Quarter: 2025Q3

REPORT INFORMATION
  Report Type: Spontaneous
  Country: US (occurrence: US)
  Receive Date: 20250702
  Receipt Date: 20250924
  Transmission Date: 20251021
  Serious: No
  Sender: NOVARTIS
  Company Number: US-002147023-NVSC2025US104263

PATIENT
  Sex: Male

DRUGS (1)
  1. KESIMPTA [Suspect]
     Active Substance: OFATUMUMAB
     Indication: Relapsing multiple sclerosis
     Dosage: 300 MG/KG, QW
     Route: 058
     Dates: start: 2023, end: 2025

REACTIONS (1)
  - Dysstasia [Unknown]

NARRATIVE: CASE EVENT DATE: 20250620
